FAERS Safety Report 9034670 (Version 1)
Quarter: 2013Q1

REPORT INFORMATION
  Report Type: Spontaneous
  Country: US (occurrence: None)
  Receive Date: 20130111
  Receipt Date: 20130111
  Transmission Date: 20140127
  Serious: Yes (Hospitalization)
  Sender: FDA-Public Use
  Company Number: 220003

PATIENT
  Age: 39 Year
  Sex: Female

DRUGS (1)
  1. INNOHEP (TINZAPARIN SODIUM) [Suspect]
     Indication: ANTICOAGULANT THERAPY

REACTIONS (8)
  - Maternal exposure during pregnancy [None]
  - Back pain [None]
  - Dyspnoea [None]
  - Caesarean section [None]
  - Incorrect drug administration duration [None]
  - Peritoneal abscess [None]
  - Haemodynamic instability [None]
  - Wound infection [None]
